FAERS Safety Report 22923484 (Version 4)
Quarter: 2023Q4

REPORT INFORMATION
  Report Type: Spontaneous
  Country: DE (occurrence: DE)
  Receive Date: 20230908
  Receipt Date: 20231124
  Transmission Date: 20240110
  Serious: Yes (Other)
  Sender: FDA-Public Use
  Company Number: DE-002147023-NVSC2023DE017430

PATIENT
  Sex: Female
  Weight: 73 kg

DRUGS (5)
  1. FULVESTRANT [Suspect]
     Active Substance: FULVESTRANT
     Indication: Hormone receptor positive HER2 negative breast cancer
     Dosage: 250 MG, QMO (DAILY DOSE)
     Route: 058
     Dates: start: 20200916
  2. KISQALI [Suspect]
     Active Substance: RIBOCICLIB
     Indication: Hormone receptor positive HER2 negative breast cancer
     Dosage: 600 MG, QD (DAILY DOSE, SCHEMA 21 DAYS INTAKE, 7 DAYS PAUSE)
     Route: 048
     Dates: start: 20201007, end: 20221213
  3. KISQALI [Suspect]
     Active Substance: RIBOCICLIB
     Dosage: 400 MG, QD (DAILY DOSE, SCHEMA 21 DAYS INTAKE, 7 DAYS PAUSE)
     Route: 048
     Dates: start: 20200916, end: 20201006
  4. KISQALI [Suspect]
     Active Substance: RIBOCICLIB
     Dosage: 400 MG, QD (DAILY DOSE, SCHEMA 21 DAYS INTAKE, 7 DAYS PAUSE)
     Route: 048
     Dates: start: 20221214
  5. ENOXAPARIN SODIUM [Concomitant]
     Active Substance: ENOXAPARIN SODIUM
     Indication: Thrombosis prophylaxis
     Route: 058

REACTIONS (11)
  - Oesophageal candidiasis [Recovered/Resolved]
  - Urinary tract infection [Recovered/Resolved]
  - Phlebitis [Recovered/Resolved]
  - Actinic keratosis [Recovered/Resolved]
  - Skin exfoliation [Unknown]
  - Toothache [Recovered/Resolved]
  - Urinary tract infection [Recovered/Resolved]
  - Vomiting [Unknown]
  - Lacrimation increased [Unknown]
  - Dry skin [Unknown]
  - Dry mouth [Unknown]

NARRATIVE: CASE EVENT DATE: 20201210
